FAERS Safety Report 24392385 (Version 4)
Quarter: 2025Q3

REPORT INFORMATION
  Report Type: Spontaneous
  Country: JP (occurrence: JP)
  Receive Date: 20241003
  Receipt Date: 20250920
  Transmission Date: 20251021
  Serious: Yes (Hospitalization)
  Sender: ALEXION PHARMACEUTICALS
  Company Number: JP-ASTRAZENECA-240102113_013220_P_1

PATIENT
  Age: 71 Year
  Sex: Male

DRUGS (2)
  1. IMJUDO [Suspect]
     Active Substance: TREMELIMUMAB\TREMELIMUMAB-ACTL
     Indication: Hepatocellular carcinoma
     Dates: start: 20240904, end: 20240904
  2. IMFINZI [Suspect]
     Active Substance: DURVALUMAB
     Indication: Hepatocellular carcinoma
     Dosage: 1500 MILLIGRAM, Q4W
     Dates: start: 20240904, end: 20240904

REACTIONS (1)
  - Cytokine release syndrome [Not Recovered/Not Resolved]

NARRATIVE: CASE EVENT DATE: 20240905
